FAERS Safety Report 21222808 (Version 4)
Quarter: 2022Q4

REPORT INFORMATION
  Report Type: Other
  Country: US (occurrence: US)
  Receive Date: 20220817
  Receipt Date: 20221102
  Transmission Date: 20230113
  Serious: No
  Sender: FDA-Public Use
  Company Number: US-DECIPHERA PHARMACEUTICALS LLC-2022US000649

PATIENT
  Sex: Male

DRUGS (2)
  1. QINLOCK [Suspect]
     Active Substance: RIPRETINIB
     Indication: Neoplasm
     Dosage: 150 MILLIGRAM, QD
     Route: 048
     Dates: start: 20220304
  2. QINLOCK [Suspect]
     Active Substance: RIPRETINIB
     Dosage: UNK

REACTIONS (12)
  - Nasopharyngitis [Recovering/Resolving]
  - Sinus headache [Recovering/Resolving]
  - Nasal congestion [Not Recovered/Not Resolved]
  - Rhinovirus infection [Recovering/Resolving]
  - Upper-airway cough syndrome [Recovering/Resolving]
  - Rhinitis allergic [Recovering/Resolving]
  - Cough [Unknown]
  - Alopecia [Unknown]
  - Constipation [Unknown]
  - Pollakiuria [Unknown]
  - Sleep disorder [Unknown]
  - Headache [Unknown]

NARRATIVE: CASE EVENT DATE: 20220101
